FAERS Safety Report 24381800 (Version 2)
Quarter: 2024Q4

REPORT INFORMATION
  Report Type: Spontaneous
  Country: US (occurrence: US)
  Receive Date: 20241001
  Receipt Date: 20241018
  Transmission Date: 20250115
  Serious: Yes (Other)
  Sender: ABBVIE
  Company Number: US-ABBVIE-5943062

PATIENT
  Age: 28 Year
  Sex: Female
  Weight: 59 kg

DRUGS (32)
  1. RINVOQ [Suspect]
     Active Substance: UPADACITINIB
     Indication: Hodgkin^s disease
     Route: 048
     Dates: start: 20231205, end: 202408
  2. HYDROCODONE [Concomitant]
     Active Substance: HYDROCODONE
     Indication: Product used for unknown indication
  3. HYDROXYZINE PAMOATE [Concomitant]
     Active Substance: HYDROXYZINE PAMOATE
     Indication: Product used for unknown indication
     Route: 048
     Dates: start: 20230626
  4. KETOCONAZOLE [Concomitant]
     Active Substance: KETOCONAZOLE
     Indication: Product used for unknown indication
     Dosage: LATHER ON SCALP TOPICALLY LEAVE ON 10 MINUTES THEN RINSE
     Route: 061
     Dates: start: 20221026
  5. SEROQUEL [Concomitant]
     Active Substance: QUETIAPINE FUMARATE
     Indication: Product used for unknown indication
     Dosage: 1/4 TAB
     Route: 048
  6. CLOBETASOL [Concomitant]
     Active Substance: CLOBETASOL
     Indication: Alopecia
     Dosage: APPLY TOPICALLY TO SCALP
     Dates: start: 20221018
  7. CLOBETASOL [Concomitant]
     Active Substance: CLOBETASOL
     Indication: Product used for unknown indication
     Dosage: APPLY TO AFFECTED AREA ON SCALP
     Dates: start: 20220920
  8. CLOTRIMAZOLE AND BETAMETHASONE DIPROPIONATE [Concomitant]
     Active Substance: BETAMETHASONE\BETAMETHASONE DIPROPIONATE\CLOTRIMAZOLE
     Indication: Product used for unknown indication
     Dosage: 1-0.05 % ?APPLY SPARINGLY TO THE?AFFECTED AREA(S) TWICE DAILY
     Dates: start: 20230622, end: 20240622
  9. DUPILUMAB [Concomitant]
     Active Substance: DUPILUMAB
     Indication: Product used for unknown indication
     Dosage: DOSE 200 MG/2 ML
  10. FLUTICASONE [Concomitant]
     Active Substance: FLUTICASONE
     Indication: Product used for unknown indication
     Dosage: ACTUATION?ADMINISTERED 2 SPRAYS INTO AFFECTED NOSTRILS
     Dates: start: 20230524
  11. GABAPENTIN [Concomitant]
     Active Substance: GABAPENTIN
     Indication: Product used for unknown indication
     Dates: start: 20231108
  12. GABAPENTIN [Concomitant]
     Active Substance: GABAPENTIN
     Indication: Product used for unknown indication
     Dates: start: 20230626
  13. TACROLIMUS [Concomitant]
     Active Substance: TACROLIMUS
     Indication: Alopecia
     Dosage: APPLY TO AFFECTED AREA ON SCALP
     Route: 061
     Dates: start: 20221018
  14. LOPERAMIDE [Concomitant]
     Active Substance: LOPERAMIDE
     Indication: Diarrhoea
     Dosage: THEN TAKE 1 CAPSULE AT EACH ADDITIONAL BOWEL MOVEMENT. MAXIMUM 8 CAPSULES IN 24 HOURS.
     Route: 048
  15. MOMETASONE [Concomitant]
     Active Substance: MOMETASONE
     Indication: Product used for unknown indication
     Dosage: 14 DAYS
     Route: 061
     Dates: start: 20231018
  16. MUPIROCIN [Concomitant]
     Active Substance: MUPIROCIN
     Indication: Product used for unknown indication
     Dates: start: 20231108
  17. FLUOCINOLONE [Concomitant]
     Active Substance: FLUOCINOLONE
     Indication: Product used for unknown indication
     Route: 061
     Dates: start: 20221122
  18. TRAMADOL [Concomitant]
     Active Substance: TRAMADOL
     Indication: Product used for unknown indication
     Route: 048
     Dates: start: 20231116
  19. ZOLPIDEM [Concomitant]
     Active Substance: ZOLPIDEM TARTRATE
     Indication: Product used for unknown indication
     Dosage: TAKE 1 TABLET AS NEEDED AT BEDTIME?.
     Route: 048
     Dates: start: 20230622
  20. DUPILUMAB [Concomitant]
     Active Substance: DUPILUMAB
     Indication: Product used for unknown indication
     Dosage: 100 MG/0.67 ML?SYRINGE
  21. HYDROXYZINE HYDROCHLORIDE [Concomitant]
     Active Substance: HYDROXYZINE HYDROCHLORIDE
     Indication: Pruritus
     Dosage: TAKE ONE TABLET BY 30 TABLET MOUTH AT NIGHT TIME AS NEEDED
     Route: 048
  22. PREDNISONE [Concomitant]
     Active Substance: PREDNISONE
     Indication: Product used for unknown indication
     Dosage: TAKE ONE TABLET BY 7 TABLET MOUTH DAILY FOR 1 WEEK
     Route: 048
     Dates: start: 20230626, end: 20230626
  23. QUETIAPINE [Concomitant]
     Active Substance: QUETIAPINE
     Indication: Product used for unknown indication
     Route: 048
     Dates: start: 20221130
  24. SHINGRIX [Concomitant]
     Active Substance: RECOMBINANT VARICELLA ZOSTER VIRUS (VZV) GLYCOPROTEIN E
     Indication: Product used for unknown indication
     Dosage: INTRAMUSCULAR SUSPENSION RECONSTITUTED
     Dates: start: 20231121, end: 20231121
  25. LORAZEPAM [Concomitant]
     Active Substance: LORAZEPAM
     Indication: Anxiety
     Dosage: TIME INTERVAL: 0.33333333 DAYS: FOR 5 DAYS
     Route: 048
     Dates: start: 20220925
  26. METHOCARBAMOL [Concomitant]
     Active Substance: METHOCARBAMOL
     Indication: Muscle spasms
     Dosage: TAKE 1 TABLET AT BMTIME AS NEEDED
     Route: 048
     Dates: start: 20230118, end: 20230821
  27. METHYLPREDNISOLONE [Concomitant]
     Active Substance: METHYLPREDNISOLONE
     Indication: Product used for unknown indication
     Route: 048
     Dates: start: 20231129, end: 20231129
  28. AZITHROMYCIN [Concomitant]
     Active Substance: AZITHROMYCIN
     Indication: Product used for unknown indication
     Dosage: TAKE 2 TABLETS ON DAY 1 THEN TAKE 1 TABLET A DAY FOR 4 DAYS.
     Route: 048
     Dates: start: 20231129, end: 20231129
  29. DUPIXENT [Concomitant]
     Active Substance: DUPILUMAB
     Indication: Product used for unknown indication
     Dosage: SOLUTION PEN INJECTOR?300 MG/2ML
     Route: 058
     Dates: start: 20231008
  30. ENGERIX-B [Concomitant]
     Active Substance: HEPATITIS B VIRUS SUBTYPE ADW2 HBSAG SURFACE PROTEIN ANTIGEN
     Indication: Product used for unknown indication
     Dosage: DOSE 20MCG/ML?SUSPENSION PREFILLED SYRINGE ?INJECT 1 ML IN LUE LX
     Dates: start: 20231121, end: 20231121
  31. PROMETHAZINE DM [Concomitant]
     Active Substance: DEXTROMETHORPHAN HYDROBROMIDE\PROMETHAZINE HYDROCHLORIDE
     Indication: Product used for unknown indication
     Dosage: 6.2545 MG/5ML?TAKE 5:10 ML
     Route: 048
     Dates: start: 20231129
  32. SCOPOLAMINE [Concomitant]
     Active Substance: SCOPOLAMINE
     Indication: Product used for unknown indication
     Dosage: PLACE BEHIND EAR NIGHT BEFORE SURGERY?72 HOURS
     Route: 062
     Dates: start: 20230720

REACTIONS (10)
  - Hodgkin^s disease [Unknown]
  - Lymphadenopathy mediastinal [Unknown]
  - Insomnia [Unknown]
  - Paraesthesia [Unknown]
  - Pruritus [Not Recovered/Not Resolved]
  - Full blood count abnormal [Unknown]
  - Metabolic function test abnormal [Unknown]
  - C-reactive protein abnormal [Unknown]
  - Red blood cell sedimentation rate abnormal [Unknown]
  - Tri-iodothyronine abnormal [Unknown]

NARRATIVE: CASE EVENT DATE: 20240903
